FAERS Safety Report 24878161 (Version 1)
Quarter: 2025Q1

REPORT INFORMATION
  Report Type: Spontaneous
  Country: GB (occurrence: GB)
  Receive Date: 20250123
  Receipt Date: 20250123
  Transmission Date: 20250409
  Serious: Yes (Other)
  Sender: CHEPLAPHARM
  Company Number: GB-ROCHE-3192992

PATIENT
  Age: 75 Year
  Sex: Female
  Weight: 97.199 kg

DRUGS (6)
  1. CAPECITABINE [Suspect]
     Active Substance: CAPECITABINE
     Dosage: FOR 2 WEEKS
     Route: 048
     Dates: start: 20220616
  2. HYDROCORTISONE [Suspect]
     Active Substance: HYDROCORTISONE
     Route: 061
  3. PHESGO [Suspect]
     Active Substance: HYALURONIDASE-ZZXF\PERTUZUMAB\TRASTUZUMAB
     Dosage: 1200MG/600MG 3 TIMES WEEKLY
     Route: 058
     Dates: start: 20220616
  4. LORATADINE [Suspect]
     Active Substance: LORATADINE
     Route: 048
     Dates: start: 20220929
  5. CHLOROCRESOL [Suspect]
     Active Substance: CHLOROCRESOL
  6. CETIRIZINE [Suspect]
     Active Substance: CETIRIZINE HYDROCHLORIDE

REACTIONS (15)
  - Syncope [Unknown]
  - Hallucination [Unknown]
  - Photosensitivity reaction [Not Recovered/Not Resolved]
  - Speech disorder [Unknown]
  - Hyperhidrosis [Unknown]
  - Visual impairment [Unknown]
  - Pruritus [Unknown]
  - Stress [Unknown]
  - Blood pressure increased [Unknown]
  - Tremor [Unknown]
  - Trismus [Unknown]
  - Illness [Unknown]
  - Anxiety [Unknown]
  - Hypertension [Unknown]
  - Tension [Unknown]

NARRATIVE: CASE EVENT DATE: 20220629
